FAERS Safety Report 6990410-0 (Version None)
Quarter: 2010Q3

REPORT INFORMATION
  Report Type: 
  Country: None (occurrence: None)
  Receive Date: 20100916
  Receipt Date: 20100611
  Transmission Date: 20110219
  Serious: Yes (Other)
  Sender: FDA-Public Use
  Company Number: US-PFIZER INC-2010073778

PATIENT
  Sex: Female
  Weight: 92.517 kg

DRUGS (9)
  1. LYRICA [Suspect]
     Indication: FIBROMYALGIA
     Dosage: 75 MG, 1X/DAY
     Route: 048
     Dates: start: 20060101
  2. LYRICA [Suspect]
     Indication: NEUROPATHY PERIPHERAL
  3. LYRICA [Suspect]
     Indication: MYALGIA
  4. LYRICA [Suspect]
     Indication: MUSCULOSKELETAL PAIN
  5. LYRICA [Suspect]
     Indication: BONE PAIN
  6. AMARYL [Concomitant]
     Indication: DIABETES MELLITUS
     Dosage: UNK
  7. ZESTORETIC [Concomitant]
     Indication: HYPERTENSION
     Dosage: UNK
  8. ADDERALL 10 [Concomitant]
     Dosage: 20 MG, UNK
  9. MONTELUKAST SODIUM [Concomitant]
     Indication: SEASONAL ALLERGY
     Dosage: UNK, AS NEEDED

REACTIONS (3)
  - DIABETES MELLITUS [None]
  - INCREASED APPETITE [None]
  - WEIGHT INCREASED [None]
